FAERS Safety Report 5158046-4 (Version None)
Quarter: 2006Q4

REPORT INFORMATION
  Report Type: 
  Country: None (occurrence: None)
  Receive Date: 20061116
  Receipt Date: 20061106
  Transmission Date: 20070319
  Serious: Yes (Hospitalization, Other)
  Sender: FDA-Public Use
  Company Number: 2005085084

PATIENT
  Age: 31 Year
  Sex: Male
  Weight: 101 kg

DRUGS (5)
  1. GENOTROPIN [Suspect]
     Indication: HYPOPITUITARISM
     Dosage: 0.2MG AND 0.3MG ON ALTERNATE DAYS (DAILY), SUBCUTANEOUS
     Route: 058
     Dates: start: 19970729, end: 20050503
  2. HYDROCORTISONE [Concomitant]
  3. LEVOTHYROXINE SODIUM [Concomitant]
  4. TESTOSTERONE [Concomitant]
  5. DHEA (PRASTERONE) [Concomitant]

REACTIONS (1)
  - PITUITARY TUMOUR [None]
